FAERS Safety Report 11358892 (Version 2)
Quarter: 2015Q3

REPORT INFORMATION
  Report Type: Spontaneous
  Country: US (occurrence: US)
  Receive Date: 20150807
  Receipt Date: 20150911
  Transmission Date: 20151125
  Serious: Yes (Hospitalization, Other)
  Sender: FDA-Public Use
  Company Number: US-PFIZER INC-2015261516

PATIENT
  Age: 31 Year
  Sex: Female
  Weight: 77 kg

DRUGS (3)
  1. LYRICA [Suspect]
     Active Substance: PREGABALIN
     Indication: SPINAL COLUMN STENOSIS
     Dosage: 75 MG ONE CAPSULE, 2X/DAY
     Route: 048
     Dates: start: 20150729, end: 20150729
  2. LYRICA [Suspect]
     Active Substance: PREGABALIN
     Dosage: 10 MG, 2X/DAY
     Dates: start: 20150729
  3. LYRICA [Suspect]
     Active Substance: PREGABALIN
     Indication: ABDOMINAL ADHESIONS
     Dosage: 75 MG ONE CAPSULE, ONE DOSE
     Route: 048
     Dates: start: 20150730, end: 20150730

REACTIONS (10)
  - Emotional disorder [Recovered/Resolved]
  - Pruritus [Recovered/Resolved]
  - Diarrhoea [Recovered/Resolved]
  - Headache [Recovering/Resolving]
  - Product use issue [Recovered/Resolved]
  - Nausea [Unknown]
  - Urticaria [Recovered/Resolved]
  - Rash [Recovered/Resolved]
  - Migraine [Recovered/Resolved]
  - Vomiting [Recovered/Resolved]

NARRATIVE: CASE EVENT DATE: 20150729
